FAERS Safety Report 4322538-8 (Version None)
Quarter: 2004Q1

REPORT INFORMATION
  Report Type: 
  Country: None (occurrence: None)
  Receive Date: 20040319
  Receipt Date: 20040305
  Transmission Date: 20041129
  Serious: Yes (Other)
  Sender: FDA-Public Use
  Company Number: 2004005575

PATIENT
  Age: 26 Year
  Sex: Male
  Weight: 55 kg

DRUGS (2)
  1. ATARAX [Suspect]
     Indication: PREMEDICATION
     Dosage: 50 MG (ONCE), INTRAMUSCULAR
     Route: 030
     Dates: start: 20040109, end: 20040109
  2. ATROPINE SULFATE [Suspect]
     Indication: PREMEDICATION
     Dosage: 0.5 MG (ONCE), ITNRAMUSCULAR
     Route: 030
     Dates: start: 20040109, end: 20040109

REACTIONS (4)
  - INJECTION SITE ANAESTHESIA [None]
  - INJECTION SITE PAIN [None]
  - PAIN [None]
  - PARALYSIS [None]
